FAERS Safety Report 25688442 (Version 1)
Quarter: 2025Q3

REPORT INFORMATION
  Report Type: Spontaneous
  Country: US (occurrence: US)
  Receive Date: 20250818
  Receipt Date: 20250818
  Transmission Date: 20251020
  Serious: Yes (Other)
  Sender: SANOFI AVENTIS
  Company Number: US-SA-2025SA240561

PATIENT
  Age: 65 Year
  Sex: Female

DRUGS (9)
  1. KEVZARA [Suspect]
     Active Substance: SARILUMAB
     Indication: Rheumatoid arthritis
     Dosage: 200 MG, QOW
     Route: 058
     Dates: end: 202507
  2. ZEPBOUND [Concomitant]
     Active Substance: TIRZEPATIDE
  3. CARISOPRODOL [Concomitant]
     Active Substance: CARISOPRODOL
  4. FLUOROURACIL [Concomitant]
     Active Substance: FLUOROURACIL
  5. FUROSEMIDE [Concomitant]
     Active Substance: FUROSEMIDE
  6. GABAPENTIN [Concomitant]
     Active Substance: GABAPENTIN
  7. HYDROCODONE [Concomitant]
     Active Substance: HYDROCODONE
  8. PRAMIPEXOLE [Concomitant]
     Active Substance: PRAMIPEXOLE
  9. TRAZODONE HCL [Concomitant]
     Active Substance: TRAZODONE HYDROCHLORIDE

REACTIONS (6)
  - Rheumatoid arthritis [Unknown]
  - Kidney infection [Unknown]
  - Fall [Unknown]
  - Wrist fracture [Unknown]
  - Influenza [Unknown]
  - Urinary tract infection [Unknown]

NARRATIVE: CASE EVENT DATE: 20250101
